FAERS Safety Report 23163815 (Version 1)
Quarter: 2023Q4

REPORT INFORMATION
  Report Type: Spontaneous
  Country: US (occurrence: None)
  Receive Date: 20231109
  Receipt Date: 20231109
  Transmission Date: 20240109
  Serious: Yes (Other)
  Sender: FDA-Public Use
  Company Number: US-Axsome Therapeutics, Inc.-AXS202311-001421

PATIENT
  Age: 40 Year
  Sex: Female

DRUGS (9)
  1. SUNOSI [Suspect]
     Active Substance: SOLRIAMFETOL
     Indication: Product used for unknown indication
     Route: 065
  2. VRAYLAR [Concomitant]
     Active Substance: CARIPRAZINE
     Indication: Product used for unknown indication
     Route: 065
  3. PRAZOSIN [Concomitant]
     Active Substance: PRAZOSIN
     Indication: Product used for unknown indication
     Route: 065
  4. CYMBALTA [Concomitant]
     Active Substance: DULOXETINE HYDROCHLORIDE
     Indication: Product used for unknown indication
     Route: 065
  5. CLONAZEPAM [Concomitant]
     Active Substance: CLONAZEPAM
     Indication: Product used for unknown indication
     Route: 065
  6. TRELEGY ELLIPTA [Concomitant]
     Active Substance: FLUTICASONE FUROATE\UMECLIDINIUM BROMIDE\VILANTEROL TRIFENATATE
     Indication: Product used for unknown indication
     Dosage: 100-62.5-25
     Route: 065
  7. ELURYNG [Concomitant]
     Active Substance: ETHINYL ESTRADIOL\ETONOGESTREL
     Indication: Product used for unknown indication
     Dosage: CHANGE EVERY 3 WEEKS
     Route: 065
  8. MELOXICAM [Concomitant]
     Active Substance: MELOXICAM
     Indication: Product used for unknown indication
     Route: 065
  9. Tylenol Arthritis ER [Concomitant]
     Indication: Product used for unknown indication
     Dosage: PRN
     Route: 065

REACTIONS (1)
  - Suicidal ideation [Unknown]

NARRATIVE: CASE EVENT DATE: 20210101
